FAERS Safety Report 9690013 (Version 1)
Quarter: 2013Q4

REPORT INFORMATION
  Report Type: Spontaneous
  Country: GB (occurrence: GB)
  Receive Date: 20131115
  Receipt Date: 20131115
  Transmission Date: 20140711
  Serious: Yes (Hospitalization)
  Sender: FDA-Public Use
  Company Number: GB-ASTRAZENECA-2013SE82332

PATIENT
  Age: 71 Year
  Sex: Female
  Weight: 81 kg

DRUGS (8)
  1. OMEPRAZOLE [Suspect]
     Route: 048
  2. CITALOPRAM [Suspect]
     Indication: DEPRESSION
     Route: 048
     Dates: start: 20131004, end: 20131030
  3. BENDROFLUMETHIAZIDE [Suspect]
     Route: 065
  4. ENALAPRIL [Suspect]
     Route: 065
  5. DOMPERIDONE [Concomitant]
     Indication: ABDOMINAL DISTENSION
     Route: 048
  6. LANSOPRAZOLE [Concomitant]
  7. LEVOTHYROXINE [Concomitant]
     Route: 048
  8. ORAMORPH [Concomitant]
     Route: 048

REACTIONS (4)
  - Hyponatraemia [Recovering/Resolving]
  - Hypokalaemia [Unknown]
  - Diarrhoea [Unknown]
  - Hallucination [Unknown]
